FAERS Safety Report 5050948-2 (Version None)
Quarter: 2006Q3

REPORT INFORMATION
  Report Type: 
  Country: None (occurrence: None)
  Receive Date: 20060710
  Receipt Date: 20060628
  Transmission Date: 20061208
  Serious: Yes (Hospitalization, Disabling, Other)
  Sender: FDA-Public Use
  Company Number: 2006030588

PATIENT
  Age: 55 Year
  Sex: Female
  Weight: 90.7194 kg

DRUGS (1)
  1. CELEBREX [Suspect]
     Indication: ARTHRITIS
     Dosage: 400 MG (200 MG, 2 IN 1 D),
     Dates: start: 20000101

REACTIONS (6)
  - ACTIVITIES OF DAILY LIVING IMPAIRED [None]
  - CEREBROVASCULAR ACCIDENT [None]
  - FOOT DEFORMITY [None]
  - HAND DEFORMITY [None]
  - HEMIPLEGIA [None]
  - PAIN [None]
